FAERS Safety Report 5089683-3 (Version None)
Quarter: 2006Q3

REPORT INFORMATION
  Report Type: 
  Country: None (occurrence: None)
  Receive Date: 20060828
  Receipt Date: 20060822
  Transmission Date: 20061208
  Serious: Yes (Other)
  Sender: FDA-Public Use
  Company Number: US-JNJFOC-20060800273

PATIENT
  Sex: Female
  Weight: 69.85 kg

DRUGS (9)
  1. REMICADE [Suspect]
  2. REMICADE [Suspect]
  3. REMICADE [Suspect]
  4. REMICADE [Suspect]
     Indication: RHEUMATOID ARTHRITIS
  5. TYLENOL [Concomitant]
     Indication: PREMEDICATION
  6. BENADRYL [Concomitant]
     Indication: PREMEDICATION
  7. PREDNISONE [Concomitant]
  8. METHOTREXATE [Concomitant]
  9. ANALGESICS [Concomitant]

REACTIONS (5)
  - ASTHENIA [None]
  - FALL [None]
  - INSOMNIA [None]
  - MOUTH ULCERATION [None]
  - THERAPEUTIC RESPONSE DECREASED [None]
